FAERS Safety Report 5217917-0 (Version None)
Quarter: 2007Q1

REPORT INFORMATION
  Report Type: 
  Country: None (occurrence: None)
  Receive Date: 20061130
  Receipt Date: 20060731
  Transmission Date: 20070707
  Serious: Yes (Hospitalization, Other)
  Sender: FDA-Public Use
  Company Number: US200608000504

PATIENT
  Age: 42 Year
  Sex: Female
  Weight: 88 kg

DRUGS (3)
  1. ZYPREXA [Suspect]
     Dosage: 10 MG, EACH EVENING
     Dates: start: 20020102, end: 20020529
  2. CELEXA [Concomitant]
  3. EFFEXOR [Concomitant]

REACTIONS (3)
  - DIABETES MELLITUS [None]
  - HYPERTENSION [None]
  - PANCREATITIS [None]
